FAERS Safety Report 9145530 (Version 1)
Quarter: 2013Q1

REPORT INFORMATION
  Report Type: Spontaneous
  Country: US (occurrence: US)
  Receive Date: 20130307
  Receipt Date: 20130307
  Transmission Date: 20140127
  Serious: No
  Sender: FDA-Public Use
  Company Number: US-PFIZER INC-2013076411

PATIENT
  Sex: Female

DRUGS (5)
  1. PRISTIQ [Suspect]
     Indication: DEPRESSION
     Dosage: UNK
  2. ZOLOFT [Suspect]
     Indication: DEPRESSION
     Dosage: UNK
  3. EFFEXOR [Suspect]
     Dosage: UNK
  4. PAXIL [Concomitant]
     Indication: DEPRESSION
     Dosage: UNK
  5. PROZAC [Concomitant]
     Indication: DEPRESSION
     Dosage: UNK

REACTIONS (1)
  - Drug ineffective [Unknown]
